FAERS Safety Report 24748312 (Version 4)
Quarter: 2025Q1

REPORT INFORMATION
  Report Type: Spontaneous
  Country: CH (occurrence: CH)
  Receive Date: 20241218
  Receipt Date: 20250206
  Transmission Date: 20250408
  Serious: No
  Sender: TRAVERE THERAPEUTICS
  Company Number: CH-BEH-2024188224

PATIENT
  Sex: Male

DRUGS (2)
  1. FILSPARI [Suspect]
     Active Substance: SPARSENTAN
     Indication: Product used for unknown indication
     Route: 065
     Dates: start: 20241003
  2. FILSPARI [Suspect]
     Active Substance: SPARSENTAN
     Route: 065
     Dates: start: 20241003

REACTIONS (1)
  - Drug ineffective [Unknown]
